FAERS Safety Report 18649673 (Version 7)
Quarter: 2024Q1

REPORT INFORMATION
  Report Type: Spontaneous
  Country: US (occurrence: US)
  Receive Date: 20201222
  Receipt Date: 20240308
  Transmission Date: 20240409
  Serious: No
  Sender: FDA-Public Use
  Company Number: US-PFIZER INC-2020503896

PATIENT
  Age: 71 Year
  Sex: Female
  Weight: 97.959 kg

DRUGS (1)
  1. PREMPRO [Suspect]
     Active Substance: ESTROGENS, CONJUGATED\MEDROXYPROGESTERONE ACETATE
     Dosage: 1X/DAY DOSE IS 1.25 AND TAKES A HALF A TABLET ONCE A DAY

REACTIONS (6)
  - Incorrect dose administered [Unknown]
  - Product dose omission in error [Unknown]
  - Memory impairment [Unknown]
  - Mood altered [Unknown]
  - Tension [Unknown]
  - Feeling abnormal [Unknown]
